FAERS Safety Report 8510851-X (Version None)
Quarter: 2012Q3

REPORT INFORMATION
  Report Type: 
  Country: None (occurrence: None)
  Receive Date: 20120716
  Receipt Date: 20120709
  Transmission Date: 20120928
  Serious: Yes (Death, Other)
  Sender: FDA-Public Use
  Company Number: US-ELI_LILLY_AND_COMPANY-US201207002979

PATIENT
  Sex: Male

DRUGS (9)
  1. ZOLOFT [Concomitant]
  2. BACTRIM [Concomitant]
     Indication: INFECTION PROPHYLAXIS
     Dosage: UNK, QD
     Dates: start: 20120401
  3. PHENAZOPYRIDINE HCL TAB [Concomitant]
  4. ALLOPURINOL [Concomitant]
  5. DECADRON [Concomitant]
     Dosage: UNK
     Dates: start: 20111101
  6. OMEPRAZOLE [Concomitant]
  7. HUMALOG [Suspect]
     Indication: HYPERGLYCAEMIA
     Dosage: 100 ML, UNK
     Dates: start: 20120323, end: 20120606
  8. CHEMOTHERAPEUTICS [Concomitant]
     Indication: METASTATIC NEOPLASM
  9. MULTI-VITAMIN [Concomitant]

REACTIONS (1)
  - NEOPLASM MALIGNANT [None]
